FAERS Safety Report 12181412 (Version 1)
Quarter: 2016Q1

REPORT INFORMATION
  Report Type: Spontaneous
  Country: US (occurrence: US)
  Receive Date: 20160315
  Receipt Date: 20160315
  Transmission Date: 20160526
  Serious: Yes (Hospitalization)
  Sender: FDA-Public Use
  Company Number: US-BAYER-2016-043481

PATIENT
  Sex: Female
  Weight: 55.33 kg

DRUGS (2)
  1. RID 1-2-3 SYSTEM [Suspect]
     Active Substance: PIPERONYL BUTOXIDE\PYRETHRUM EXTRACT
     Dosage: UNK
     Dates: start: 20160115, end: 201601
  2. RID SHAMPOO [Suspect]
     Active Substance: PIPERONYL BUTOXIDE\PYRETHRIN I
     Dosage: 1 DF, UNK
     Route: 061
     Dates: start: 201601, end: 201602

REACTIONS (10)
  - Memory impairment [Recovered/Resolved]
  - Hospitalisation [None]
  - Headache [None]
  - Neck pain [Recovered/Resolved]
  - Dysarthria [Recovered/Resolved]
  - Dry mouth [Recovered/Resolved]
  - Pain of skin [None]
  - Ear pain [Recovered/Resolved]
  - Product use issue [None]
  - Pruritus [None]

NARRATIVE: CASE EVENT DATE: 20160115
